FAERS Safety Report 9341171 (Version 2)
Quarter: 2015Q2

REPORT INFORMATION
  Report Type: Spontaneous
  Country: CA (occurrence: CA)
  Receive Date: 20130611
  Receipt Date: 20150427
  Transmission Date: 20150821
  Serious: Yes (Death, Hospitalization, Other)
  Sender: FDA-Public Use
  Company Number: CA-ROCHE-1235224

PATIENT
  Sex: Male

DRUGS (3)
  1. PEGASYS [Suspect]
     Active Substance: PEGINTERFERON ALFA-2A
     Indication: HEPATITIS C
     Route: 065
  2. RIBAVIRIN. [Suspect]
     Active Substance: RIBAVIRIN
     Indication: HEPATITIS C
     Route: 065
  3. INCIVEK [Suspect]
     Active Substance: TELAPREVIR
     Indication: HEPATITIS C
     Dosage: THERAPY DURATION: 12 WEEKS
     Route: 065

REACTIONS (5)
  - Hepatic cirrhosis [Fatal]
  - Sepsis [Fatal]
  - Hepatic failure [Fatal]
  - Anaemia [Unknown]
  - Haematology test abnormal [Unknown]
